FAERS Safety Report 5614087-1 (Version None)
Quarter: 2008Q1

REPORT INFORMATION
  Report Type: 
  Country: None (occurrence: None)
  Receive Date: 20080205
  Receipt Date: 20080131
  Transmission Date: 20080703
  Serious: Yes (Death, Hospitalization)
  Sender: FDA-Public Use
  Company Number: BR-ABBOTT-08P-020-0435978-00

PATIENT
  Sex: Female
  Weight: 39 kg

DRUGS (4)
  1. HUMIRA [Suspect]
     Indication: RHEUMATOID ARTHRITIS
     Route: 058
     Dates: start: 20070901
  2. PREDNISONE TAB [Concomitant]
     Indication: RHEUMATOID ARTHRITIS
  3. UNKNOWN MAGITRAL FORMULA WITH PIROXICAM [Concomitant]
     Indication: RHEUMATOID ARTHRITIS
  4. TRAMADOL HCL [Concomitant]
     Indication: PAIN

REACTIONS (8)
  - ANAEMIA [None]
  - BLOOD CREATININE ABNORMAL [None]
  - BLOOD UREA ABNORMAL [None]
  - C-REACTIVE PROTEIN INCREASED [None]
  - RHEUMATOID FACTOR INCREASED [None]
  - SCAR [None]
  - SEPSIS [None]
  - STREPTOCOCCAL IDENTIFICATION TEST POSITIVE [None]
